FAERS Safety Report 17699183 (Version 2)
Quarter: 2020Q2

REPORT INFORMATION
  Report Type: Spontaneous
  Country: US (occurrence: US)
  Receive Date: 20200423
  Receipt Date: 20200521
  Transmission Date: 20200714
  Serious: No
  Sender: FDA-Public Use
  Company Number: US-VERTEX PHARMACEUTICALS-2020-008895

PATIENT
  Sex: Female

DRUGS (3)
  1. TOBRAMYCIN. [Concomitant]
     Active Substance: TOBRAMYCIN
  2. TRIKAFTA [Suspect]
     Active Substance: ELEXACAFTOR\IVACAFTOR\TEZACAFTOR
     Indication: CYSTIC FIBROSIS
     Dosage: 2 TABLETS (100MG ELEXACAFTOR/50MGTEZACAFTOR/75MG IVACAFTOR) AM AND 1 TABLET (150MG IVACAFTOR) PM
     Route: 048
     Dates: start: 20200304
  3. CAYSTON [Concomitant]
     Active Substance: AZTREONAM

REACTIONS (5)
  - Pruritus [Not Recovered/Not Resolved]
  - Decreased appetite [Unknown]
  - Abdominal discomfort [Unknown]
  - Abdominal pain upper [Recovered/Resolved]
  - Rash [Not Recovered/Not Resolved]

NARRATIVE: CASE EVENT DATE: 2020
